FAERS Safety Report 21224103 (Version 1)
Quarter: 2022Q3

REPORT INFORMATION
  Report Type: Spontaneous
  Country: US (occurrence: None)
  Receive Date: 20220817
  Receipt Date: 20220817
  Transmission Date: 20221027
  Serious: Yes (Disabling)
  Sender: FDA-Public Use
  Company Number: None

PATIENT
  Age: 39 Year
  Sex: Female
  Weight: 99 kg

DRUGS (11)
  1. DEXTROAMPHET SACCHARAT, AMPHET ASPARTATE, DEXTROAMPHET SULFATE AND AMP [Suspect]
     Active Substance: AMPHETAMINE ASPARTATE\AMPHETAMINE SULFATE\DEXTROAMPHETAMINE SACCHARATE\DEXTROAMPHETAMINE SULFATE
     Indication: Attention deficit hyperactivity disorder
     Dosage: OTHER QUANTITY : 1 TABLET(S);?FREQUENCY : 3 TIMES A DAY;?
     Route: 048
     Dates: start: 20220120, end: 20220817
  2. HUMIRA [Concomitant]
     Active Substance: ADALIMUMAB
  3. ADDERALL [Concomitant]
     Active Substance: AMPHETAMINE ASPARTATE\AMPHETAMINE SULFATE\DEXTROAMPHETAMINE SACCHARATE\DEXTROAMPHETAMINE SULFATE
  4. TIZANIDINE [Concomitant]
     Active Substance: TIZANIDINE
  5. CLONAZEPAM [Concomitant]
     Active Substance: CLONAZEPAM
  6. ELIQUIS [Concomitant]
     Active Substance: APIXABAN
  7. PHAZYME [Concomitant]
     Active Substance: DIMETHICONE 410
  8. MAGNESIUM CITRATE [Concomitant]
  9. TYLENOL [Concomitant]
     Active Substance: ACETAMINOPHEN
  10. ADVIL [Concomitant]
     Active Substance: IBUPROFEN
  11. VITAMINS [Concomitant]
     Active Substance: VITAMINS

REACTIONS (9)
  - Product supply issue [None]
  - Product substitution issue [None]
  - Migraine [None]
  - Headache [None]
  - Product taste abnormal [None]
  - Suspected product quality issue [None]
  - Impaired driving ability [None]
  - Disturbance in attention [None]
  - Symptom recurrence [None]

NARRATIVE: CASE EVENT DATE: 20220120
